FAERS Safety Report 9374643 (Version 1)
Quarter: 2013Q2

REPORT INFORMATION
  Report Type: Spontaneous
  Country: FR (occurrence: FR)
  Receive Date: 20130628
  Receipt Date: 20130628
  Transmission Date: 20140414
  Serious: Yes (Hospitalization, Other)
  Sender: FDA-Public Use
  Company Number: FR-PFIZER INC-2013189365

PATIENT
  Age: 66 Year
  Sex: Female

DRUGS (4)
  1. NEURONTIN [Suspect]
     Dosage: 300 MG/DAY
     Route: 048
     Dates: end: 201302
  2. LIORESAL [Suspect]
     Indication: MUSCLE CONTRACTURE
     Dosage: 10 MG, 3X/DAY
     Route: 048
     Dates: end: 201302
  3. PARACETAMOL [Concomitant]
  4. FUROSEMIDE [Concomitant]

REACTIONS (6)
  - Coma [Recovered/Resolved]
  - Bradycardia [Recovered/Resolved]
  - Hypothermia [Recovered/Resolved]
  - Fatigue [Recovered/Resolved]
  - Atrioventricular block first degree [Recovered/Resolved]
  - Blood thyroid stimulating hormone increased [Recovered/Resolved]
